FAERS Safety Report 4665069-8 (Version None)
Quarter: 2005Q2

REPORT INFORMATION
  Report Type: 
  Country: None (occurrence: None)
  Receive Date: 20050517
  Receipt Date: 20050506
  Transmission Date: 20051028
  Serious: Yes (Hospitalization)
  Sender: FDA-Public Use
  Company Number: 2004045440

PATIENT
  Age: 72 Year
  Sex: Female
  Weight: 40 kg

DRUGS (2)
  1. NORVASC [Suspect]
     Indication: HYPERTENSION
     Dosage: 5 MG (5 MG, 1 IN 1 D), ORAL
     Route: 048
     Dates: end: 20030926
  2. TEMOCAPRIL (TEMOCAPRIL) [Suspect]
     Indication: HYPERTENSION
     Dosage: 2 MG (2 MG, 1 IN 1 D), ORAL
     Route: 048
     Dates: end: 20030926

REACTIONS (7)
  - DIZZINESS [None]
  - LOSS OF CONSCIOUSNESS [None]
  - SHOCK [None]
  - SINUS BRADYCARDIA [None]
  - SYNCOPE [None]
  - VENTRICULAR DYSFUNCTION [None]
  - VENTRICULAR HYPERTROPHY [None]
